FAERS Safety Report 10753526 (Version 2)
Quarter: 2017Q2

REPORT INFORMATION
  Report Type: Report from Study
  Country: None (occurrence: CA)
  Receive Date: 20150131
  Receipt Date: 20170610
  Transmission Date: 20170829
  Serious: Yes (Hospitalization, Disabling, Other)
  Sender: FDA-Public Use
  Company Number: CA-ABBVIE-15K-028-1338344-00

PATIENT
  Age: 43 Year
  Sex: Male
  Weight: 79.45 kg

DRUGS (14)
  1. HUMIRA [Suspect]
     Active Substance: ADALIMUMAB
     Indication: CROHN^S DISEASE
     Route: 058
     Dates: start: 20100712, end: 2013
  2. CLONAZEPAM. [Concomitant]
     Active Substance: CLONAZEPAM
     Indication: INSOMNIA
     Route: 048
  3. QUETIAPINE. [Concomitant]
     Active Substance: QUETIAPINE
     Indication: INSOMNIA
     Route: 048
  4. CLONAZEPAM. [Concomitant]
     Active Substance: CLONAZEPAM
     Indication: ANXIETY
     Route: 048
  5. METOCLOPRAMIDE. [Concomitant]
     Active Substance: METOCLOPRAMIDE
     Indication: NAUSEA
     Route: 048
  6. LANSOPRAZOLE. [Concomitant]
     Active Substance: LANSOPRAZOLE
     Indication: GASTROOESOPHAGEAL REFLUX DISEASE
     Route: 048
  7. SYNTHROID [Concomitant]
     Active Substance: LEVOTHYROXINE SODIUM
     Indication: HYPOTHYROIDISM
     Route: 048
  8. DIVALPROEX ACID [Concomitant]
     Active Substance: DIVALPROEX SODIUM
     Indication: AFFECTIVE DISORDER
     Route: 048
     Dates: end: 2013
  9. B-12 VITAMINS [Concomitant]
     Indication: VITAMIN SUPPLEMENTATION
     Route: 030
  10. HUMIRA [Suspect]
     Active Substance: ADALIMUMAB
     Indication: PSORIATIC ARTHROPATHY
     Route: 058
     Dates: start: 2014
  11. PREDNISONE. [Concomitant]
     Active Substance: PREDNISONE
     Indication: CROHN^S DISEASE
     Route: 048
  12. SERTRALINE [Concomitant]
     Active Substance: SERTRALINE HYDROCHLORIDE
     Indication: ANXIETY
     Route: 048
  13. AZATHIOPRINE. [Concomitant]
     Active Substance: AZATHIOPRINE
     Indication: CROHN^S DISEASE
     Route: 048
  14. PREDNISONE. [Concomitant]
     Active Substance: PREDNISONE
     Indication: ARTHRITIS

REACTIONS (17)
  - Spinal fracture [Recovered/Resolved]
  - Spinal fracture [Unknown]
  - Seizure [Recovered/Resolved]
  - Fall [Recovered/Resolved]
  - Postoperative abscess [Unknown]
  - Wrist fracture [Recovered/Resolved]
  - Staphylococcal infection [Recovered/Resolved]
  - Crohn^s disease [Not Recovered/Not Resolved]
  - Staphylococcal infection [Recovered/Resolved]
  - Spinal fracture [Recovering/Resolving]
  - Abdominal hernia [Not Recovered/Not Resolved]
  - Fall [Recovered/Resolved]
  - Psoriatic arthropathy [Not Recovered/Not Resolved]
  - Upper limb fracture [Recovered/Resolved]
  - Post procedural infection [Unknown]
  - Pain [Not Recovered/Not Resolved]
  - Staphylococcal infection [Recovered/Resolved]

NARRATIVE: CASE EVENT DATE: 2010
